FAERS Safety Report 8954626 (Version 2)
Quarter: 2013Q1

REPORT INFORMATION
  Report Type: Spontaneous
  Country: US (occurrence: US)
  Receive Date: 20121207
  Receipt Date: 20130214
  Transmission Date: 20140127
  Serious: Yes (Other)
  Sender: FDA-Public Use
  Company Number: US-ASTRAZENECA-2012SE88658

PATIENT
  Age: 48 Year
  Sex: Male

DRUGS (4)
  1. CAPRELSA [Suspect]
     Indication: THYROID CANCER
     Route: 048
     Dates: start: 20121027
  2. CAPRELSA [Suspect]
     Indication: THYROID CANCER
     Route: 048
     Dates: start: 20121027
  3. CALCITRIOL [Concomitant]
  4. LEVOTHYROXINE [Concomitant]

REACTIONS (4)
  - Convulsion [Recovering/Resolving]
  - Neck pain [Unknown]
  - Acne [Unknown]
  - Insomnia [Unknown]
